FAERS Safety Report 17331781 (Version 1)
Quarter: 2020Q1

REPORT INFORMATION
  Report Type: Spontaneous
  Country: US (occurrence: US)
  Receive Date: 20200110
  Receipt Date: 20200110
  Transmission Date: 20200409
  Serious: Yes (Death)
  Sender: FDA-Public Use
  Company Number: None

PATIENT
  Age: 59 Year
  Sex: Male
  Weight: 107 kg

DRUGS (12)
  1. POTASSIUM CHLORIDE. [Concomitant]
     Active Substance: POTASSIUM CHLORIDE
  2. ALPRAZOLAM. [Concomitant]
     Active Substance: ALPRAZOLAM
  3. FLONASE [Concomitant]
     Active Substance: FLUTICASONE PROPIONATE
  4. HYDROCODONE/ACETAMINOPHEN [Concomitant]
     Active Substance: ACETAMINOPHEN\HYDROCODONE
  5. RITUXIMAB. [Suspect]
     Active Substance: RITUXIMAB
  6. FUROSEMIDE. [Concomitant]
     Active Substance: FUROSEMIDE
  7. ACALABRUTINIB. [Suspect]
     Active Substance: ACALABRUTINIB
  8. ASPIRIN. [Concomitant]
     Active Substance: ASPIRIN
  9. CYCLOBENZAPRINE. [Concomitant]
     Active Substance: CYCLOBENZAPRINE
  10. HYDROCHLOROTHIAZIDE. [Concomitant]
     Active Substance: HYDROCHLOROTHIAZIDE
  11. BRENDAMUSTINE [Suspect]
     Active Substance: BENDAMUSTINE
  12. MAGNESIUJM GLUCONATE [Concomitant]

REACTIONS (23)
  - Weight increased [None]
  - Hyponatraemia [None]
  - Lethargy [None]
  - Aortic valve thickening [None]
  - Portal hypertension [None]
  - Neoplasm malignant [None]
  - Unresponsive to stimuli [None]
  - Malignant neoplasm progression [None]
  - Hypotension [None]
  - Discomfort [None]
  - Mood altered [None]
  - Portal vein thrombosis [None]
  - Hepatic function abnormal [None]
  - Hyperkalaemia [None]
  - Nausea [None]
  - Mental impairment [None]
  - Hepatic mass [None]
  - Hypovolaemia [None]
  - Decreased appetite [None]
  - Computerised tomogram abnormal [None]
  - Hypernatraemia [None]
  - Ascites [None]
  - Confusional state [None]

NARRATIVE: CASE EVENT DATE: 20191212
